FAERS Safety Report 8379041-8 (Version None)
Quarter: 2012Q2

REPORT INFORMATION
  Report Type: 
  Country: None (occurrence: None)
  Receive Date: 20120522
  Receipt Date: 20120522
  Transmission Date: 20120825
  Serious: Yes (Congenital Anomaly)
  Sender: FDA-Public Use
  Company Number: None

PATIENT
  Sex: Female
  Weight: 81.6475 kg

DRUGS (1)
  1. CARBAMAZEPINE [Suspect]

REACTIONS (6)
  - MALAISE [None]
  - FEELING ABNORMAL [None]
  - IMPAIRED DRIVING ABILITY [None]
  - SOMNOLENCE [None]
  - MEMORY IMPAIRMENT [None]
  - BRADYPHRENIA [None]
